FAERS Safety Report 8773148 (Version 2)
Quarter: 2012Q4

REPORT INFORMATION
  Report Type: Report from Study
  Country: DE (occurrence: DE)
  Receive Date: 20120907
  Receipt Date: 20120911
  Transmission Date: 20130627
  Serious: Yes (Hospitalization, Other)
  Sender: FDA-Public Use
  Company Number: DE-ROCHE-754825

PATIENT
  Age: 49 Year
  Sex: Male
  Weight: 78 kg

DRUGS (8)
  1. MABTHERA [Suspect]
     Indication: CHRONIC LYMPHOCYTIC LEUKAEMIA
     Route: 042
  2. MABTHERA [Suspect]
     Dosage: LAST DOSE PRIOR TO SAE 16 AUGUST 2010
     Route: 042
  3. FLUDARABINE PHOSPHATE/FLUDARABINE PHOSPHATE [Suspect]
     Indication: CHRONIC LYMPHOCYTIC LEUKAEMIA
     Dosage: DATE OF LAST DOSE PRIOR TO SAE 19 AUGUST 2010.
     Route: 042
     Dates: start: 20100216, end: 20100820
  4. CYCLOPHOSPHAMIDE/CYCLOPHOSPHAMIDE [Suspect]
     Indication: CHRONIC LYMPHOCYTIC LEUKAEMIA
     Dosage: DATE OF LAST DOSE PRIOR TO SAE 19 AUGUST 2010.
     Route: 042
     Dates: start: 20100216, end: 20100820
  5. AMOXICILLIN [Concomitant]
     Route: 065
     Dates: start: 201011, end: 20101202
  6. TETRA-GELOMYRTOL [Concomitant]
     Route: 065
     Dates: start: 201011, end: 20101202
  7. PARACODIN [Concomitant]
     Route: 065
     Dates: start: 201011, end: 20101202
  8. IBUPROFEN [Concomitant]
     Route: 065
     Dates: start: 201011, end: 20101202

REACTIONS (2)
  - Pneumonia [Not Recovered/Not Resolved]
  - Pulmonary sarcoidosis [Recovered/Resolved]
